FAERS Safety Report 9369934 (Version 2)
Quarter: 2013Q3

REPORT INFORMATION
  Report Type: Spontaneous
  Country: GR (occurrence: GR)
  Receive Date: 20130626
  Receipt Date: 20130701
  Transmission Date: 20140515
  Serious: Yes (Hospitalization, Other)
  Sender: FDA-Public Use
  Company Number: GR-PFIZER INC-2013187956

PATIENT
  Age: 63 Year
  Sex: Female

DRUGS (4)
  1. AMLODIPINE BESILATE [Suspect]
     Dosage: 5MG, DAILY
     Route: 065
  2. TICLOPIDINE [Suspect]
     Dosage: 250 MG, 2X/DAY
     Route: 065
  3. TICLOPIDINE [Suspect]
     Dosage: 250 MG, 1X/DAY
     Route: 065
  4. ASPIRIN [Concomitant]
     Dosage: 100MG, DAILY
     Route: 065

REACTIONS (6)
  - Bone marrow failure [Recovered/Resolved]
  - Aplastic anaemia [Recovered/Resolved]
  - Pallor [Recovered/Resolved]
  - Pyrexia [Recovered/Resolved]
  - White blood cell count decreased [Recovered/Resolved]
  - Platelet count decreased [Recovered/Resolved]
